FAERS Safety Report 23750069 (Version 1)
Quarter: 2024Q2

REPORT INFORMATION
  Report Type: Report from Study
  Country: GR (occurrence: GR)
  Receive Date: 20240417
  Receipt Date: 20240417
  Transmission Date: 20240715
  Serious: Yes (Other)
  Sender: FDA-Public Use
  Company Number: GR-CELLTRION INC.-2024GR008730

PATIENT

DRUGS (2)
  1. INFLIXIMAB [Suspect]
     Active Substance: INFLIXIMAB
     Indication: Rheumatoid arthritis
     Dosage: REMSIMA 120MG EVERY 2 WEEKS (NON-COMPLETION OF THE INDUCTION SCHEME)
     Route: 058
     Dates: start: 20240409
  2. INFLIXIMAB [Suspect]
     Active Substance: INFLIXIMAB
     Indication: Rheumatoid arthritis
     Dosage: 400 MG
     Route: 041
     Dates: start: 20240212, end: 20240212

REACTIONS (4)
  - Spinal fusion surgery [Unknown]
  - Intentional dose omission [Unknown]
  - Intentional product use issue [Unknown]
  - Overdose [Unknown]
